FAERS Safety Report 4806519-3 (Version None)
Quarter: 2005Q4

REPORT INFORMATION
  Report Type: 
  Country: None (occurrence: None)
  Receive Date: 20051019
  Receipt Date: 20051007
  Transmission Date: 20060501
  Serious: Yes (Other)
  Sender: FDA-Public Use
  Company Number: 2005139319

PATIENT
  Sex: Female
  Weight: 80.7403 kg

DRUGS (1)
  1. BEXTRA [Suspect]
     Indication: OSTEOARTHRITIS
     Dosage: 20 MG (20 MG, 1 IN 1 D)

REACTIONS (3)
  - ARTHRITIS [None]
  - DISEASE PROGRESSION [None]
  - INTERVERTEBRAL DISC PROTRUSION [None]
